FAERS Safety Report 7100291-2 (Version None)
Quarter: 2010Q4

REPORT INFORMATION
  Report Type: 
  Country: None (occurrence: None)
  Receive Date: 20101112
  Receipt Date: 20101102
  Transmission Date: 20110411
  Serious: Yes (Death)
  Sender: FDA-Public Use
  Company Number: JP-AMGEN-KDC438900

PATIENT
  Age: 68 Year
  Sex: Female
  Weight: 58 kg

DRUGS (9)
  1. PANITUMUMAB [Suspect]
     Indication: COLORECTAL CANCER
     Dosage: 6 MG/KG, Q2WK
     Route: 041
     Dates: start: 20100903, end: 20100903
  2. FOLINIC ACID [Suspect]
     Dosage: UNK UNK, UNK
     Dates: end: 20100801
  3. FLUOROURACIL [Suspect]
     Dosage: UNK UNK, UNK
     Dates: end: 20100801
  4. OXALIPLATIN [Suspect]
     Dosage: UNK UNK, UNK
     Dates: end: 20100801
  5. ANTIHISTAMINES [Concomitant]
     Indication: PROPHYLAXIS
     Dosage: UNK UNK, UNK
     Route: 065
  6. ANTIHISTAMINES [Concomitant]
     Route: 065
  7. CORTICOSTEROID NOS [Concomitant]
     Indication: PROPHYLAXIS
     Dosage: UNK UNK, UNK
     Route: 065
     Dates: start: 20100901
  8. LOXOPROFEN [Concomitant]
     Indication: CANCER PAIN
     Route: 048
     Dates: start: 20100905, end: 20100905
  9. OXYCONTIN [Concomitant]
     Indication: CANCER PAIN
     Dosage: UNK UNK, Q6H
     Route: 048
     Dates: start: 20100908, end: 20100915

REACTIONS (1)
  - INTERSTITIAL LUNG DISEASE [None]
